FAERS Safety Report 4951727-4 (Version None)
Quarter: 2006Q1

REPORT INFORMATION
  Report Type: 
  Country: None (occurrence: None)
  Receive Date: 20060323
  Receipt Date: 20060321
  Transmission Date: 20060701
  Serious: Yes (Other)
  Sender: FDA-Public Use
  Company Number: US-GLAXOSMITHKLINE-A0598417A

PATIENT
  Age: 56 Year
  Sex: Female

DRUGS (10)
  1. AVANDARYL [Suspect]
     Dosage: 1TAB TWICE PER DAY
     Route: 048
     Dates: start: 20060301, end: 20060319
  2. LANTUS [Concomitant]
  3. LOTENSIN [Concomitant]
  4. NOVOLOG [Concomitant]
  5. ASPIRIN [Concomitant]
  6. METOCLOPRAMIDE [Concomitant]
  7. PAPAYA ENZYME [Concomitant]
     Route: 048
  8. GAS X [Concomitant]
  9. PEPCID AC [Concomitant]
  10. BEANO [Concomitant]

REACTIONS (4)
  - BLOOD GLUCOSE DECREASED [None]
  - HALLUCINATION, VISUAL [None]
  - LOSS OF CONSCIOUSNESS [None]
  - PSYCHOTIC DISORDER [None]
